FAERS Safety Report 16901078 (Version 2)
Quarter: 2020Q2

REPORT INFORMATION
  Report Type: Spontaneous
  Country: JP (occurrence: JP)
  Receive Date: 20191009
  Receipt Date: 20200626
  Transmission Date: 20200713
  Serious: No
  Sender: FDA-Public Use
  Company Number: JP-BEH-2019107871

PATIENT
  Age: 32 Year
  Sex: Female
  Weight: 44.4 kg

DRUGS (14)
  1. PREDONINE [Concomitant]
     Active Substance: PREDNISOLONE
     Indication: CHRONIC INFLAMMATORY DEMYELINATING POLYRADICULONEUROPATHY
     Dosage: 10 MILLIGRAM
     Route: 048
     Dates: end: 20190711
  2. PREDONINE [Concomitant]
     Active Substance: PREDNISOLONE
     Dosage: 10 MILLIGRAM, 2 DAYS
     Route: 048
     Dates: start: 20190809, end: 20190905
  3. METHYLPREDNISOLONE SODIUM SUCCINATE. [Concomitant]
     Active Substance: METHYLPREDNISOLONE SODIUM SUCCINATE
     Dosage: 1 GRAM
     Dates: start: 20190809, end: 20190809
  4. HIZENTRA [Suspect]
     Active Substance: HUMAN IMMUNOGLOBULIN G
     Dosage: 16 G / 80 ML, QOW
     Route: 058
     Dates: start: 20190712, end: 20190920
  5. HIZENTRA [Suspect]
     Active Substance: HUMAN IMMUNOGLOBULIN G
     Dosage: 16 G / 80 ML, QD
     Route: 058
     Dates: start: 20191004, end: 20191004
  6. PREDONINE [Concomitant]
     Active Substance: PREDNISOLONE
     Dosage: 15 MILLIGRAM, 2 DAYS
     Route: 048
     Dates: start: 20190809, end: 20190905
  7. HIZENTRA [Suspect]
     Active Substance: HUMAN IMMUNOGLOBULIN G
     Indication: CHRONIC INFLAMMATORY DEMYELINATING POLYRADICULONEUROPATHY
     Dosage: 16 G / 80 ML, QD
     Route: 058
     Dates: start: 20190705, end: 20190705
  8. HIZENTRA [Suspect]
     Active Substance: HUMAN IMMUNOGLOBULIN G
     Dosage: 16 G / 80 ML, QOW
     Route: 058
     Dates: start: 20190719, end: 20191220
  9. PREDONINE [Concomitant]
     Active Substance: PREDNISOLONE
     Dosage: 20 MILLIGRAM, 2 DAYS
     Route: 048
     Dates: start: 20190906
  10. METHYLPREDNISOLONE SODIUM SUCCINATE. [Concomitant]
     Active Substance: METHYLPREDNISOLONE SODIUM SUCCINATE
     Indication: CHRONIC INFLAMMATORY DEMYELINATING POLYRADICULONEUROPATHY
     Dosage: 1 GRAM
     Dates: start: 20190707, end: 20190707
  11. METHYLPREDNISOLONE SODIUM SUCCINATE. [Concomitant]
     Active Substance: METHYLPREDNISOLONE SODIUM SUCCINATE
     Dosage: 1 GRAM
     Dates: start: 20190822, end: 20190824
  12. PREDONINE [Concomitant]
     Active Substance: PREDNISOLONE
     Dosage: 15 MILLIGRAM
     Route: 048
     Dates: start: 20190712, end: 20190808
  13. PREDONINE [Concomitant]
     Active Substance: PREDNISOLONE
     Dosage: 5 MILLIGRAM, 2 DAYS
     Route: 048
     Dates: start: 20190906, end: 20191002
  14. HIZENTRA [Suspect]
     Active Substance: HUMAN IMMUNOGLOBULIN G
     Dosage: 16 G / 80 ML, QOW
     Route: 058
     Dates: start: 20191018, end: 20191213

REACTIONS (3)
  - Injection site erythema [Recovered/Resolved]
  - Injection site swelling [Recovered/Resolved]
  - Injection site extravasation [Recovering/Resolving]

NARRATIVE: CASE EVENT DATE: 20190705
